FAERS Safety Report 17142247 (Version 2)
Quarter: 2020Q1

REPORT INFORMATION
  Report Type: Spontaneous
  Country: JP (occurrence: JP)
  Receive Date: 20191211
  Receipt Date: 20200115
  Transmission Date: 20200409
  Serious: Yes (Hospitalization, Other)
  Sender: FDA-Public Use
  Company Number: JP-MYLANLABS-2019M1120119

PATIENT
  Age: 57 Year
  Sex: Male

DRUGS (7)
  1. LEVOFLOXACIN                       /01278903/ [Suspect]
     Active Substance: LEVOFLOXACIN
     Dosage: UNK
     Route: 048
     Dates: start: 20190927, end: 20191015
  2. LYRICA [Concomitant]
     Active Substance: PREGABALIN
     Indication: SCIATICA
     Dosage: 50 MILLIGRAM, BID
     Route: 048
     Dates: start: 20180801, end: 20190820
  3. LEVOFLOXACIN                       /01278903/ [Suspect]
     Active Substance: LEVOFLOXACIN
     Indication: PSOAS ABSCESS
     Dosage: 500 MILLIGRAM, QD
     Route: 048
     Dates: start: 20190812, end: 20190825
  4. CELECOX [Concomitant]
     Active Substance: CELECOXIB
     Indication: RHEUMATOID ARTHRITIS
     Dosage: 100 MILLIGRAM, BID
     Route: 048
     Dates: end: 20190701
  5. PREDNISOLONE TABLETS 1MG ^PFIZER^ [Suspect]
     Active Substance: PREDNISOLONE
     Indication: RHEUMATOID ARTHRITIS
     Dosage: 17.5 MILLIGRAM, QD
     Route: 048
  6. LYRICA [Concomitant]
     Active Substance: PREGABALIN
     Indication: NEURALGIA
     Dosage: 50 MILLIGRAM, BID
     Route: 048
     Dates: start: 20190906
  7. CELECOX [Concomitant]
     Active Substance: CELECOXIB
     Dosage: 200 MILLIGRAM, BID
     Route: 048
     Dates: start: 20190701

REACTIONS (2)
  - Osteonecrosis [Not Recovered/Not Resolved]
  - Cataract [Unknown]

NARRATIVE: CASE EVENT DATE: 201907
